FAERS Safety Report 9597332 (Version 1)
Quarter: 2013Q4

REPORT INFORMATION
  Report Type: Spontaneous
  Country: US (occurrence: US)
  Receive Date: 20131004
  Receipt Date: 20131004
  Transmission Date: 20140711
  Serious: No
  Sender: FDA-Public Use
  Company Number: US-AMGEN-USASP2013018264

PATIENT
  Age: 68 Year
  Sex: Female

DRUGS (2)
  1. ENBREL [Suspect]
     Indication: RHEUMATOID ARTHRITIS
     Dosage: 50 MG, WEEKLY
     Dates: start: 20110304
  2. METHOTREXATE [Concomitant]
     Dosage: UNK

REACTIONS (3)
  - Feeling abnormal [Recovered/Resolved]
  - Somnolence [Recovered/Resolved]
  - Insomnia [Recovered/Resolved]
